FAERS Safety Report 13071923 (Version 1)
Quarter: 2016Q4

REPORT INFORMATION
  Report Type: Spontaneous
  Country: US (occurrence: US)
  Receive Date: 20161228
  Receipt Date: 20161228
  Transmission Date: 20170207
  Serious: Yes (Other)
  Sender: FDA-Public Use
  Company Number: None

PATIENT
  Age: 61 Year
  Sex: Female
  Weight: 83.2 kg

DRUGS (6)
  1. VITAMENS [Concomitant]
  2. VERSED [Suspect]
     Active Substance: MIDAZOLAM HYDROCHLORIDE
     Indication: SURGERY
     Dates: start: 20161227
  3. MEDFORMEN [Concomitant]
  4. C [Concomitant]
  5. D [Concomitant]
  6. TURMERIC [Concomitant]
     Active Substance: TURMERIC

REACTIONS (4)
  - Vision blurred [None]
  - Balance disorder [None]
  - Diplopia [None]
  - Vertigo [None]

NARRATIVE: CASE EVENT DATE: 20161227
